FAERS Safety Report 6422969-6 (Version None)
Quarter: 2009Q4

REPORT INFORMATION
  Report Type: 
  Country: None (occurrence: None)
  Receive Date: 20091102
  Receipt Date: 20091021
  Transmission Date: 20100525
  Serious: Yes (Other)
  Sender: FDA-Public Use
  Company Number: CH-BAYER-200817893GPV

PATIENT
  Sex: Female

DRUGS (1)
  1. MIRENA [Suspect]
     Indication: DRUG USE FOR UNKNOWN INDICATION
     Route: 015
     Dates: start: 20000101

REACTIONS (7)
  - AFFECT LABILITY [None]
  - AGGRESSION [None]
  - BIPOLAR DISORDER [None]
  - BORDERLINE PERSONALITY DISORDER [None]
  - EMOTIONAL DISORDER [None]
  - FEMALE SEXUAL AROUSAL DISORDER [None]
  - LOSS OF LIBIDO [None]
